FAERS Safety Report 7030666-1 (Version None)
Quarter: 2010Q4

REPORT INFORMATION
  Report Type: 
  Country: None (occurrence: None)
  Receive Date: 20101006
  Receipt Date: 20100928
  Transmission Date: 20110411
  Serious: Yes (Other)
  Sender: FDA-Public Use
  Company Number: US-PFIZER INC-2010113637

PATIENT
  Sex: Female
  Weight: 111.1 kg

DRUGS (5)
  1. SUTENT [Suspect]
     Indication: METASTATIC RENAL CELL CARCINOMA
     Dosage: 25 MG, 2X/DAY, 4 WEEKS ON, 2 WEEKS OFF
     Route: 048
     Dates: start: 20100816
  2. ALLOPURINOL [Concomitant]
     Indication: GOUT
     Dosage: 100 MG, 2X/DAY
  3. PREDNISONE [Concomitant]
     Indication: INFLAMMATION
     Dosage: UNK
  4. ACEBUTOLOL [Concomitant]
     Indication: HYPERTENSION
     Dosage: 600 MG, UNK
  5. SITAGLIPTIN [Concomitant]
     Indication: GLUCOSE TOLERANCE IMPAIRED
     Dosage: 100 MG, UNK

REACTIONS (4)
  - BLOOD GLUCOSE INCREASED [None]
  - GOUT [None]
  - HYPERTENSION [None]
  - PALMAR-PLANTAR ERYTHRODYSAESTHESIA SYNDROME [None]
